FAERS Safety Report 9554570 (Version 2)
Quarter: 2013Q3

REPORT INFORMATION
  Report Type: Spontaneous
  Country: IT (occurrence: IT)
  Receive Date: 20130925
  Receipt Date: 20130925
  Transmission Date: 20140515
  Serious: Yes (Other)
  Sender: FDA-Public Use
  Company Number: IT-JNJFOC-20130901863

PATIENT
  Age: 61 Year
  Sex: Female

DRUGS (6)
  1. IBUPROFEN (UNSPECIFIED) [Suspect]
     Route: 048
  2. IBUPROFEN (UNSPECIFIED) [Suspect]
     Indication: ARTHRALGIA
     Route: 048
     Dates: start: 20130814, end: 20130814
  3. LASIX [Concomitant]
     Indication: PRODUCT USED FOR UNKNOWN INDICATION
     Dosage: 30 TABLETS
     Route: 065
  4. MEDROL [Concomitant]
     Indication: PRODUCT USED FOR UNKNOWN INDICATION
     Route: 065
  5. EUTIROX [Concomitant]
     Indication: PRODUCT USED FOR UNKNOWN INDICATION
     Route: 065
  6. LORTAAN [Concomitant]
     Indication: PRODUCT USED FOR UNKNOWN INDICATION
     Route: 065

REACTIONS (3)
  - Arthralgia [Recovering/Resolving]
  - Anaphylactic reaction [Recovering/Resolving]
  - Oedema [Recovering/Resolving]
